FAERS Safety Report 5082817-6 (Version None)
Quarter: 2006Q3

REPORT INFORMATION
  Report Type: 
  Country: None (occurrence: None)
  Receive Date: 20060814
  Receipt Date: 20060804
  Transmission Date: 20061208
  Serious: Yes (Other)
  Sender: FDA-Public Use
  Company Number: 2006088382

PATIENT
  Age: 43 Year
  Sex: Male
  Weight: 104.7809 kg

DRUGS (2)
  1. ZOLOFT [Suspect]
     Indication: ANXIETY
     Dosage: 100 MG (50 MG, 2 IN 1 D)
  2. XANAX [Suspect]
     Indication: ANXIETY
     Dosage: 0.25 MG, AS NEEDED ORAL
     Route: 048

REACTIONS (2)
  - CATECHOLAMINES URINE INCREASED [None]
  - HYPERHIDROSIS [None]
